FAERS Safety Report 4431687-5 (Version None)
Quarter: 2004Q3

REPORT INFORMATION
  Report Type: 
  Country: None (occurrence: None)
  Receive Date: 20040825
  Receipt Date: 20040813
  Transmission Date: 20050211
  Serious: Yes (Other)
  Sender: FDA-Public Use
  Company Number: AR-JNJFOC-20040805189

PATIENT
  Age: 7 Year
  Sex: Female

DRUGS (3)
  1. REMICADE [Suspect]
     Route: 042
  2. REMICADE [Suspect]
     Route: 042
  3. METHOTREXATE SODIUM [Concomitant]
     Dosage: 10MG/M2/WEEK

REACTIONS (5)
  - CHEST PAIN [None]
  - COUGH [None]
  - CYANOSIS [None]
  - FACE OEDEMA [None]
  - RASH ERYTHEMATOUS [None]
